FAERS Safety Report 10280554 (Version 3)
Quarter: 2014Q4

REPORT INFORMATION
  Report Type: Report from Study
  Country: BR (occurrence: BR)
  Receive Date: 20140707
  Receipt Date: 20141103
  Transmission Date: 20150528
  Serious: Yes (Hospitalization)
  Sender: FDA-Public Use
  Company Number: PHHO2008BR06968

PATIENT

DRUGS (2)
  1. HYDROCHLOROTHIAZIDE. [Suspect]
     Active Substance: HYDROCHLOROTHIAZIDE
     Indication: HYPERTENSION
     Dosage: 25 MG, QD
     Dates: start: 20080305
  2. SOM230 [Suspect]
     Active Substance: PASIREOTIDE
     Indication: ACRAL OVERGROWTH
     Dosage: 600 UG, BID
     Route: 058
     Dates: start: 20080121, end: 20080623

REACTIONS (3)
  - Drug ineffective [Recovering/Resolving]
  - Diabetes mellitus [Recovering/Resolving]
  - Concomitant disease progression [Recovering/Resolving]
